FAERS Safety Report 4588728-4 (Version None)
Quarter: 2005Q1

REPORT INFORMATION
  Report Type: 
  Country: None (occurrence: None)
  Receive Date: 20050216
  Receipt Date: 20050131
  Transmission Date: 20050727
  Serious: Yes (Hospitalization)
  Sender: FDA-Public Use
  Company Number: US_010972959

PATIENT
  Age: 55 Year
  Sex: Female
  Weight: 114 kg

DRUGS (22)
  1. HUMULIN 70/30 [Suspect]
     Indication: DIABETES MELLITUS
     Dosage: 70 U/2 DAY
     Dates: start: 20000801, end: 20041001
  2. HUMULIN R [Suspect]
     Indication: DIABETES MELLITUS
     Dates: end: 20041001
  3. HUMALOG [Suspect]
     Indication: DIABETES MELLITUS
     Dates: start: 20010807, end: 20010101
  4. HUMALOG [Suspect]
     Indication: DIABETES MELLITUS NON-INSULIN-DEPENDENT
     Dosage: 20 U DAY
     Dates: start: 20040929
  5. HUMULIN N [Suspect]
     Indication: DIABETES MELLITUS NON-INSULIN-DEPENDENT
     Dosage: 98 U DAY
     Dates: start: 20040929
  6. IBUPROFEN [Concomitant]
  7. PSEUDOEPHEDRINE HCL [Concomitant]
  8. GUAIFENESIN [Concomitant]
  9. DICYCLOMINE HYDROCHLORIDE [Concomitant]
  10. LASIX [Concomitant]
  11. KLOR-CON [Concomitant]
  12. NITROGLYCERIN [Concomitant]
  13. LIPITOR [Concomitant]
  14. ACTOS [Concomitant]
  15. NEURONTIN (GABAPENTIN PFIZER) [Concomitant]
  16. VALSARTAN [Concomitant]
  17. LOPRESSOR [Concomitant]
  18. LISINOPRIL [Concomitant]
  19. AUGMENTIN '125' [Concomitant]
  20. BIAXIN [Concomitant]
  21. NOVOLOG [Concomitant]
  22. CORTIZONE (HYDROCORTISONE) [Concomitant]

REACTIONS (24)
  - ARTHRALGIA [None]
  - ARTHROPATHY [None]
  - BLOOD GLUCOSE INCREASED [None]
  - BLOOD PRESSURE INCREASED [None]
  - BRONCHITIS [None]
  - CAROTID ARTERY OCCLUSION [None]
  - DECREASED INTEREST [None]
  - DYSPNOEA [None]
  - EAR INFECTION [None]
  - FEELING ABNORMAL [None]
  - FLATULENCE [None]
  - HEADACHE [None]
  - MYOCARDIAL INFARCTION [None]
  - NAUSEA [None]
  - NERVOUSNESS [None]
  - PHARMACEUTICAL PRODUCT COMPLAINT [None]
  - PHARYNGITIS [None]
  - RHINORRHOEA [None]
  - SINUS CONGESTION [None]
  - SINUSITIS [None]
  - TRANSIENT ISCHAEMIC ATTACK [None]
  - WALKING AID USER [None]
  - WEIGHT DECREASED [None]
  - WEIGHT INCREASED [None]
